FAERS Safety Report 19106706 (Version 1)
Quarter: 2021Q2

REPORT INFORMATION
  Report Type: Report from Study
  Country: None (occurrence: US)
  Receive Date: 20210407
  Receipt Date: 20210407
  Transmission Date: 20210717
  Serious: Yes (Hospitalization, Other)
  Sender: FDA-Public Use
  Company Number: US-ABBVIE-21K-163-3791944-00

PATIENT
  Age: 57 Year
  Sex: Female
  Weight: 84.44 kg

DRUGS (3)
  1. HUMIRA [Suspect]
     Active Substance: ADALIMUMAB
     Indication: RHEUMATOID ARTHRITIS
     Dosage: CITRATE FREE
     Route: 058
     Dates: start: 2018, end: 202009
  2. HUMIRA [Suspect]
     Active Substance: ADALIMUMAB
     Dosage: CITRATE FREE
     Route: 058
     Dates: start: 202012
  3. COVID?19 VACCINE NOS. [Concomitant]
     Active Substance: COVID-19 VACCINE NOS
     Indication: COVID-19 IMMUNISATION
     Dosage: PFIZER
     Route: 030
     Dates: start: 202103, end: 202103

REACTIONS (12)
  - Back pain [Recovering/Resolving]
  - Pharyngeal swelling [Recovering/Resolving]
  - Dyspnoea [Recovering/Resolving]
  - Post procedural complication [Unknown]
  - Oropharyngeal pain [Recovering/Resolving]
  - Musculoskeletal disorder [Recovered/Resolved]
  - Rheumatoid arthritis [Unknown]
  - Pain [Recovering/Resolving]
  - Intervertebral disc degeneration [Recovering/Resolving]
  - Dysphagia [Recovering/Resolving]
  - Feeling abnormal [Not Recovered/Not Resolved]
  - Pain [Not Recovered/Not Resolved]

NARRATIVE: CASE EVENT DATE: 202009
